FAERS Safety Report 9269027 (Version 2)
Quarter: 2013Q4

REPORT INFORMATION
  Report Type: Spontaneous
  Country: TR (occurrence: TR)
  Receive Date: 20130503
  Receipt Date: 20131112
  Transmission Date: 20140711
  Serious: Yes (Hospitalization)
  Sender: FDA-Public Use
  Company Number: TR-AMGEN-TURSP2012068419

PATIENT
  Age: 38 Year
  Sex: Male

DRUGS (3)
  1. ENBREL [Suspect]
     Indication: ANKYLOSING SPONDYLITIS
     Dosage: 50 MG, ONCE IN 21 DAYS
     Route: 058
     Dates: start: 20111103, end: 20121008
  2. ENBREL [Suspect]
     Dosage: 50 MG, ONCE IN 21 DAYS
     Route: 058
  3. ENBREL [Suspect]
     Dosage: 50 MG, ONCE IN 2 WEEKS
     Route: 058

REACTIONS (5)
  - Vertigo [Recovered/Resolved]
  - Balance disorder [Recovered/Resolved]
  - Pain [Recovered/Resolved]
  - Otitis media [Recovered/Resolved]
  - Hepatic enzyme increased [Not Recovered/Not Resolved]
